FAERS Safety Report 4616777-6 (Version None)
Quarter: 2005Q1

REPORT INFORMATION
  Report Type: 
  Country: None (occurrence: None)
  Receive Date: 20050318
  Receipt Date: 20050310
  Transmission Date: 20050727
  Serious: Yes (Hospitalization)
  Sender: FDA-Public Use
  Company Number: HQWYE058711MAR05

PATIENT
  Age: 24 Year
  Sex: Male

DRUGS (3)
  1. RAPAMUNE [Suspect]
     Indication: IMMUNOSUPPRESSANT DRUG THERAPY
     Dosage: 5 MG 1X PER 1 DAY ORAL
     Route: 048
     Dates: start: 20040602
  2. RAPAMUNE [Suspect]
     Indication: PROPHYLAXIS AGAINST TRANSPLANT REJECTION
     Dosage: 5 MG 1X PER 1 DAY ORAL
     Route: 048
     Dates: start: 20040602
  3. PREDNISONE [Concomitant]

REACTIONS (2)
  - BLOOD TEST ABNORMAL [None]
  - KIDNEY TRANSPLANT REJECTION [None]
